FAERS Safety Report 14363524 (Version 2)
Quarter: 2018Q1

REPORT INFORMATION
  Report Type: Spontaneous
  Country: US (occurrence: US)
  Receive Date: 20180108
  Receipt Date: 20180226
  Transmission Date: 20180509
  Serious: Yes (Other)
  Sender: FDA-Public Use
  Company Number: US-PFIZER INC-2018005078

PATIENT
  Age: 64 Year
  Sex: Female

DRUGS (3)
  1. DILANTIN [Suspect]
     Active Substance: PHENYTOIN
     Indication: EPILEPSY
     Dosage: 100 MG, UNK
     Route: 048
  2. PHENOBARBITAL. [Suspect]
     Active Substance: PHENOBARBITAL
     Dosage: UNK
  3. ACIPHEX [Concomitant]
     Active Substance: RABEPRAZOLE SODIUM
     Indication: GASTROOESOPHAGEAL REFLUX DISEASE
     Dosage: 20 MG, ONCE DAILY
     Route: 048

REACTIONS (9)
  - Upper limb fracture [Unknown]
  - Osteoporosis [Unknown]
  - Periarthritis [Unknown]
  - Lethargy [Recovered/Resolved]
  - Myalgia [Unknown]
  - Back disorder [Unknown]
  - Arthralgia [Unknown]
  - Limb discomfort [Unknown]
  - Fall [Unknown]

NARRATIVE: CASE EVENT DATE: 2016
